FAERS Safety Report 13587615 (Version 1)
Quarter: 2017Q2

REPORT INFORMATION
  Report Type: Report from Study
  Country: US (occurrence: US)
  Receive Date: 20170526
  Receipt Date: 20170526
  Transmission Date: 20170830
  Serious: Yes (Life-Threatening, Hospitalization, Other)
  Sender: FDA-Public Use
  Company Number: PHHY2017US073146

PATIENT
  Age: 3 Year
  Sex: Female

DRUGS (4)
  1. MIRALAX [Concomitant]
     Active Substance: POLYETHYLENE GLYCOL 3350
     Indication: CONSTIPATION
     Dosage: 8.5 G, PRN DAILY
     Route: 050
  2. DABRAFENIB [Suspect]
     Active Substance: DABRAFENIB
     Indication: METASTATIC MALIGNANT MELANOMA
     Dosage: 40 MG, BID
     Route: 048
     Dates: start: 20160223
  3. LEVETIRACETAM. [Concomitant]
     Active Substance: LEVETIRACETAM
     Indication: PRODUCT USED FOR UNKNOWN INDICATION
     Dosage: 400 MG, BID
     Route: 050
  4. PENICILLIN V POTASSIUM. [Concomitant]
     Active Substance: PENICILLIN V POTASSIUM
     Indication: PRODUCT USED FOR UNKNOWN INDICATION
     Dosage: 125 MG, BID
     Route: 050

REACTIONS (73)
  - Pain [Recovered/Resolved]
  - Lymphocyte count increased [Recovered/Resolved]
  - Hypokalaemia [Recovered/Resolved]
  - Hyperkalaemia [Recovered/Resolved]
  - Hyperglycaemia [Recovered/Resolved]
  - Gamma-glutamyltransferase increased [Recovered/Resolved]
  - Aspiration [Recovered/Resolved]
  - Seizure [Unknown]
  - Lymphocyte count decreased [Recovered/Resolved]
  - Hyperkalaemia [Recovered/Resolved]
  - Alanine aminotransferase abnormal [Recovered/Resolved]
  - Acidosis [Recovered/Resolved]
  - Thrombocytosis [Recovered/Resolved]
  - Hypoalbuminaemia [Recovered/Resolved]
  - Sinusitis [Unknown]
  - Skin lesion [Recovered/Resolved]
  - Anaemia [Recovered/Resolved]
  - Anaemia [Recovered/Resolved]
  - Muscular weakness [Recovered/Resolved]
  - Pain [Recovered/Resolved]
  - Lymphocyte count decreased [Recovered/Resolved]
  - Lymphocyte count increased [Recovered/Resolved]
  - Hyperkalaemia [Unknown]
  - Dysphagia [Recovered/Resolved]
  - Aspartate aminotransferase abnormal [Recovered/Resolved]
  - Middle ear inflammation [Recovered/Resolved]
  - Haemolysis [Unknown]
  - Lymphocyte count decreased [Recovered/Resolved]
  - Lymphocyte count increased [Recovered/Resolved]
  - Hypokalaemia [Recovered/Resolved]
  - Alanine aminotransferase abnormal [Recovered/Resolved]
  - Hypoalbuminaemia [Recovered/Resolved]
  - Thrombocytosis [Unknown]
  - Constipation [Recovered/Resolved]
  - Gamma-glutamyltransferase increased [Recovered/Resolved]
  - Anaemia [Recovered/Resolved]
  - Lymphocyte count decreased [Recovered/Resolved]
  - Haemophilus infection [Unknown]
  - Pyrexia [Unknown]
  - Lung infection [Recovered/Resolved]
  - Lymphocyte count decreased [Recovered/Resolved]
  - Hypokalaemia [Recovered/Resolved]
  - Hypokalaemia [Recovered/Resolved]
  - Gamma-glutamyltransferase increased [Recovered/Resolved]
  - Gamma-glutamyltransferase increased [Recovered/Resolved]
  - Anaemia [Recovered/Resolved]
  - Anaemia [Recovered/Resolved]
  - Bacterascites [Recovered/Resolved]
  - Fungaemia [Recovered/Resolved]
  - Candida infection [Recovered/Resolved]
  - Hypokalaemia [Recovered/Resolved]
  - Alanine aminotransferase abnormal [Recovered/Resolved]
  - Constipation [Recovered/Resolved]
  - Gamma-glutamyltransferase increased [Recovered/Resolved]
  - Anaemia [Recovered/Resolved]
  - Bacterascites [Recovered/Resolved]
  - Thrombocytosis [Recovered/Resolved]
  - Abdominal distension [Recovered/Resolved]
  - Excoriation [Recovered/Resolved]
  - Wheezing [Recovered/Resolved]
  - Hyperkalaemia [Recovered/Resolved]
  - Dysphagia [Recovered/Resolved]
  - Upper respiratory tract infection [Recovered/Resolved]
  - Nausea [Recovered/Resolved]
  - Gamma-glutamyltransferase increased [Recovered/Resolved]
  - Seizure [Recovered/Resolved]
  - Muscular weakness [Recovered/Resolved]
  - Lymphocyte count decreased [Recovered/Resolved]
  - Hypokalaemia [Recovered/Resolved]
  - Hypoalbuminaemia [Recovered/Resolved]
  - Constipation [Recovered/Resolved]
  - Dysphagia [Recovered/Resolved]
  - Pain [Recovered/Resolved]

NARRATIVE: CASE EVENT DATE: 20160312
